FAERS Safety Report 9806415 (Version 1)
Quarter: 2014Q1

REPORT INFORMATION
  Report Type: Spontaneous
  Country: PT (occurrence: None)
  Receive Date: 20140107
  Receipt Date: 20140107
  Transmission Date: 20141002
  Serious: Yes (Other)
  Sender: FDA-Public Use
  Company Number: IPC201312-000549

PATIENT
  Age: 81 Year
  Sex: Female

DRUGS (2)
  1. WARFARIN (WARFARIN) (WARFARIN) [Suspect]
  2. PHENYTOIN [Suspect]

REACTIONS (7)
  - Skin necrosis [None]
  - Mental status changes [None]
  - Multi-organ failure [None]
  - Erythema [None]
  - Leukocytosis [None]
  - Neutrophilia [None]
  - International normalised ratio increased [None]
